FAERS Safety Report 12744062 (Version 3)
Quarter: 2022Q2

REPORT INFORMATION
  Report Type: Report from Study
  Country: JP (occurrence: JP)
  Receive Date: 20160914
  Receipt Date: 20220526
  Transmission Date: 20220721
  Serious: Yes (Death, Life-Threatening)
  Sender: FDA-Public Use
  Company Number: JP-BAUSCH-BL-2016-022416

PATIENT
  Age: 57 Year
  Sex: Female
  Weight: 41 kg

DRUGS (17)
  1. TETRABENAZINE [Suspect]
     Active Substance: TETRABENAZINE
     Indication: Huntington^s disease
     Route: 048
     Dates: start: 20140417, end: 20140424
  2. TETRABENAZINE [Suspect]
     Active Substance: TETRABENAZINE
     Dosage: TETRABENAZINE WAS INCREASED
     Route: 048
     Dates: start: 20140425, end: 20140502
  3. TETRABENAZINE [Suspect]
     Active Substance: TETRABENAZINE
     Dosage: TETRABENAZINE WAS INCREASED
     Route: 048
     Dates: start: 20140502, end: 20140530
  4. TETRABENAZINE [Suspect]
     Active Substance: TETRABENAZINE
     Dosage: TETRABENAZINE WAS REDUCED
     Route: 048
     Dates: start: 20140531, end: 20150522
  5. TETRABENAZINE [Suspect]
     Active Substance: TETRABENAZINE
     Dosage: TETRABENAZINE WAS INCREASED
     Route: 048
     Dates: start: 20150523, end: 20150529
  6. TETRABENAZINE [Suspect]
     Active Substance: TETRABENAZINE
     Dosage: TETRABENAZINE WAS INCREASED
     Route: 048
     Dates: start: 20150530, end: 20151005
  7. TETRABENAZINE [Suspect]
     Active Substance: TETRABENAZINE
     Dosage: TETRABENAZINE WAS INCREASED
     Route: 048
     Dates: start: 20151006, end: 20160713
  8. TETRABENAZINE [Suspect]
     Active Substance: TETRABENAZINE
     Route: 050
     Dates: start: 20160714, end: 20160722
  9. TETRABENAZINE [Suspect]
     Active Substance: TETRABENAZINE
     Dosage: TETRABENAZINE WAS INCREASED
     Route: 048
     Dates: start: 20160723, end: 20160729
  10. TETRABENAZINE [Suspect]
     Active Substance: TETRABENAZINE
     Dosage: TETRABENAZINE WAS INCREASED
     Route: 048
     Dates: start: 20160730, end: 20160911
  11. TETRABENAZINE [Suspect]
     Active Substance: TETRABENAZINE
     Route: 050
     Dates: start: 20160908, end: 20220512
  12. HALOPERIDOL [Concomitant]
     Active Substance: HALOPERIDOL
     Indication: Product used for unknown indication
     Route: 048
     Dates: start: 20121227, end: 20140627
  13. HALOPERIDOL [Concomitant]
     Active Substance: HALOPERIDOL
     Route: 048
     Dates: start: 20140628, end: 20160630
  14. HALOPERIDOL [Concomitant]
     Active Substance: HALOPERIDOL
     Dosage: DOSE REDUCED
     Route: 048
     Dates: start: 20160701, end: 20160911
  15. AMANTADINE HYDROCHLORIDE [Concomitant]
     Active Substance: AMANTADINE HYDROCHLORIDE
     Indication: Product used for unknown indication
     Route: 048
     Dates: start: 20121227, end: 20160713
  16. GASTER [Concomitant]
     Active Substance: FAMOTIDINE
     Indication: Product used for unknown indication
     Route: 048
     Dates: end: 20220512
  17. HALOPERIDOL [Concomitant]
     Active Substance: HALOPERIDOL
     Indication: Product used for unknown indication
     Route: 048
     Dates: end: 20220512

REACTIONS (3)
  - Ileus [Recovered/Resolved]
  - Dyspnoea [Fatal]
  - Blood creatine phosphokinase increased [Recovered/Resolved]

NARRATIVE: CASE EVENT DATE: 20160612
